FAERS Safety Report 9848758 (Version 3)
Quarter: 2014Q1

REPORT INFORMATION
  Report Type: Spontaneous
  Country: GB (occurrence: GB)
  Receive Date: 20140128
  Receipt Date: 20140220
  Transmission Date: 20141002
  Serious: Yes (Hospitalization)
  Sender: FDA-Public Use
  Company Number: GB-BAYER-2014-010212

PATIENT
  Age: 53 Year
  Sex: Male

DRUGS (27)
  1. STIVARGA [Suspect]
     Indication: GASTROINTESTINAL STROMAL TUMOUR
     Dosage: 80 MG DAILY
     Dates: start: 201312, end: 20131230
  2. STIVARGA [Suspect]
     Indication: GASTROINTESTINAL STROMAL TUMOUR
     Dosage: 80 MG DAILY
     Dates: start: 20140102, end: 2014
  3. STIVARGA [Suspect]
     Indication: GASTROINTESTINAL STROMAL TUMOUR
     Dosage: 120 MG DAILY
     Dates: start: 20140106, end: 201401
  4. STIVARGA [Suspect]
     Indication: GASTROINTESTINAL STROMAL TUMOUR
     Dosage: 160 MG DAILY
     Dates: start: 201401
  5. DALTEPARIN [Concomitant]
     Indication: PROPHYLAXIS
     Dosage: 5000 IU, QD
     Route: 058
  6. PARACETAMOL [Concomitant]
     Indication: ABDOMINAL PAIN
     Dosage: 1 G, QDS
     Route: 048
  7. PREDNISOLONE [Concomitant]
     Indication: HYPERGLYCAEMIA
     Dosage: 40 MG, DAILY
     Route: 048
  8. PREDNISOLONE [Concomitant]
     Indication: HYPERGLYCAEMIA
     Dosage: 30 MG, BD
     Route: 048
  9. PREDNISOLONE [Concomitant]
     Indication: HYPERGLYCAEMIA
     Dosage: 20 MG, UNK
     Route: 048
  10. LANSOPRAZOLE [Concomitant]
     Indication: PROPHYLAXIS
     Dosage: 30 MG, DAILY
     Route: 048
  11. CYCLIZINE [Concomitant]
     Indication: NAUSEA
     Dosage: 50 MG, TDS
     Route: 048
  12. CYCLIZINE [Concomitant]
     Indication: VOMITING
  13. PHOSPHATES [Concomitant]
     Indication: CONSTIPATION
     Dosage: 1 DF, QD
     Route: 054
  14. SANDO K [POTASSIUM CHLORIDE] [Concomitant]
     Indication: HYPOKALAEMIA
     Dosage: 2 DF, TDS
     Route: 048
  15. METOCLOPRAMIDE [Concomitant]
     Indication: NAUSEA
     Dosage: 10 MG,TDS
     Route: 048
  16. METOCLOPRAMIDE [Concomitant]
     Indication: VOMITING
     Dosage: 10 MG,TDS
     Route: 042
  17. MOVICOL [Concomitant]
     Indication: CONSTIPATION
     Dosage: 25 ML, BD
     Route: 048
  18. OCTREOTIDE [Concomitant]
     Indication: HORMONE THERAPY
     Dosage: 0.05 MG, BD
     Route: 058
  19. DOCUSATE SODIUM [Concomitant]
     Indication: CONSTIPATION
     Dosage: 200 MG, BD
     Route: 048
  20. DIAZOXIDE [Concomitant]
     Indication: HYPOGLYCAEMIA
     Dosage: 100 MG, BD
     Route: 048
  21. ORAMORPH [Concomitant]
     Indication: ABDOMINAL PAIN
     Dosage: 2-5MG
     Route: 048
  22. HYPOSTOP [Concomitant]
     Indication: HYPOGLYCAEMIA
     Route: 048
  23. DOMPERIDONE [Concomitant]
     Indication: NAUSEA
     Dosage: 20 MG, UNK
     Route: 048
  24. DOMPERIDONE [Concomitant]
     Indication: VOMITING
  25. LEVOMEPROMAZINE [Concomitant]
     Indication: NAUSEA
     Dosage: 0.006 MG,TDS
     Route: 058
  26. LEVOMEPROMAZINE [Concomitant]
     Indication: VOMITING
  27. DEXAMETHASONE [Concomitant]
     Dosage: 6 MG, ONCE
     Route: 042

REACTIONS (2)
  - Intestinal obstruction [Recovered/Resolved]
  - Pericardial effusion [None]
